FAERS Safety Report 16353460 (Version 1)
Quarter: 2019Q2

REPORT INFORMATION
  Report Type: Report from Study
  Country: GB (occurrence: GB)
  Receive Date: 20190524
  Receipt Date: 20190524
  Transmission Date: 20190711
  Serious: Yes (Death, Other)
  Sender: FDA-Public Use
  Company Number: GB-ROCHE-2317548

PATIENT

DRUGS (7)
  1. BORTEZOMIB. [Suspect]
     Active Substance: BORTEZOMIB
     Dosage: ON DAYS 1-8
     Route: 058
     Dates: start: 20140228
  2. CYCLOPHOSPHAMIDE. [Suspect]
     Active Substance: CYCLOPHOSPHAMIDE
     Indication: DIFFUSE LARGE B-CELL LYMPHOMA
     Route: 042
  3. BORTEZOMIB. [Suspect]
     Active Substance: BORTEZOMIB
     Indication: DIFFUSE LARGE B-CELL LYMPHOMA
     Dosage: ON DAYS 1 AND 8
     Route: 042
  4. RITUXIMAB. [Suspect]
     Active Substance: RITUXIMAB
     Indication: DIFFUSE LARGE B-CELL LYMPHOMA
     Route: 041
  5. DOXORUBICIN [Suspect]
     Active Substance: DOXORUBICIN
     Indication: DIFFUSE LARGE B-CELL LYMPHOMA
     Route: 042
  6. VINCRISTINE [Suspect]
     Active Substance: VINCRISTINE
     Indication: DIFFUSE LARGE B-CELL LYMPHOMA
     Dosage: MAXIMUM TOTAL DOSE 2 M
     Route: 042
  7. PREDNISOLONE. [Suspect]
     Active Substance: PREDNISOLONE
     Indication: DIFFUSE LARGE B-CELL LYMPHOMA
     Route: 048

REACTIONS (179)
  - Neutropenic sepsis [Fatal]
  - Pulmonary fibrosis [Fatal]
  - Constipation [Unknown]
  - Pain [Unknown]
  - Abdominal infection [Unknown]
  - Agitation [Unknown]
  - Proctalgia [Unknown]
  - Decreased appetite [Unknown]
  - Blood bilirubin increased [Unknown]
  - Dehydration [Unknown]
  - Dizziness [Unknown]
  - Ear pain [Unknown]
  - Gastric haemorrhage [Unknown]
  - Gastrointestinal haemorrhage [Unknown]
  - General physical health deterioration [Unknown]
  - Headache [Unknown]
  - Hyperkalaemia [Unknown]
  - Hypertension [Unknown]
  - Hypertriglyceridaemia [Unknown]
  - Hyponatraemia [Unknown]
  - Infusion related reaction [Unknown]
  - Stomatitis [Unknown]
  - Peripheral motor neuropathy [Unknown]
  - Vascular access complication [Unknown]
  - Hypoglycaemia [Unknown]
  - Febrile neutropenia [Fatal]
  - Renal failure [Fatal]
  - Small intestinal stenosis [Unknown]
  - Neuropathy peripheral [Unknown]
  - Mucosal inflammation [Unknown]
  - Acute kidney injury [Unknown]
  - Vision blurred [Unknown]
  - Neuroendocrine tumour [Unknown]
  - Device related infection [Unknown]
  - Lower respiratory tract infection [Unknown]
  - Ulcerative keratitis [Unknown]
  - Blood creatinine increased [Unknown]
  - Hypocalcaemia [Unknown]
  - Lethargy [Unknown]
  - Neutrophil count decreased [Unknown]
  - Scrotal infection [Unknown]
  - White blood cell count decreased [Unknown]
  - Wound infection [Unknown]
  - Myelodysplastic syndrome [Unknown]
  - Leukaemia [Unknown]
  - Anaemia [Unknown]
  - Alopecia [Unknown]
  - Alanine aminotransferase increased [Unknown]
  - Angina pectoris [Unknown]
  - Liver function test increased [Unknown]
  - Hypotension [Unknown]
  - Hypoxia [Unknown]
  - Rales [Unknown]
  - Left ventricular dysfunction [Unknown]
  - Osteoporosis [Unknown]
  - C-reactive protein increased [Unknown]
  - Platelet count decreased [Unknown]
  - Rash maculo-papular [Unknown]
  - Skin infection [Unknown]
  - Urinary retention [Unknown]
  - Weight decreased [Unknown]
  - Intestinal perforation [Fatal]
  - Abdominal pain [Unknown]
  - Diarrhoea [Unknown]
  - Dyspnoea [Unknown]
  - Fatigue [Unknown]
  - Back pain [Unknown]
  - Chills [Unknown]
  - Cardiac failure [Unknown]
  - Infection [Unknown]
  - Insomnia [Unknown]
  - Leukopenia [Unknown]
  - Lymphocyte count decreased [Unknown]
  - Varicella zoster virus infection [Unknown]
  - Paraesthesia [Unknown]
  - Pleuritic pain [Unknown]
  - Productive cough [Unknown]
  - Sinusitis [Unknown]
  - Small intestinal perforation [Unknown]
  - Oropharyngeal pain [Unknown]
  - Presyncope [Unknown]
  - Thrombocytopenia [Unknown]
  - Peripheral sensory neuropathy [Unknown]
  - Hypersensitivity [Unknown]
  - Gouty arthritis [Unknown]
  - Cystitis [Unknown]
  - Troponin increased [Unknown]
  - Cellulitis [Unknown]
  - Clostridium difficile infection [Unknown]
  - Confusional state [Unknown]
  - Dental caries [Unknown]
  - Encephalopathy [Unknown]
  - Glucose tolerance impaired [Unknown]
  - Hypoacusis [Unknown]
  - Hypokalaemia [Unknown]
  - Lymph gland infection [Unknown]
  - Lymphopenia [Unknown]
  - Meningitis [Unknown]
  - Neoplasm [Unknown]
  - Oedema peripheral [Unknown]
  - Peripheral nerve infection [Unknown]
  - Pleural effusion [Unknown]
  - Pleural infection [Unknown]
  - Skin lesion [Unknown]
  - Spinal cord herniation [Unknown]
  - Splenic abscess [Unknown]
  - Supraventricular tachycardia [Unknown]
  - Syncope [Unknown]
  - Urinary tract infection [Unknown]
  - Wound dehiscence [Unknown]
  - Neutropenia [Fatal]
  - Respiratory failure [Fatal]
  - Sepsis [Unknown]
  - Nausea [Unknown]
  - Cough [Unknown]
  - Pyrexia [Unknown]
  - Acute coronary syndrome [Unknown]
  - Aspartate aminotransferase increased [Unknown]
  - Atrial fibrillation [Unknown]
  - Bladder cancer [Unknown]
  - Bone pain [Unknown]
  - Depression [Unknown]
  - Intervertebral disc protrusion [Unknown]
  - Dysgeusia [Unknown]
  - Malnutrition [Unknown]
  - Hypoalbuminaemia [Unknown]
  - Hypophosphataemia [Unknown]
  - Kidney infection [Unknown]
  - Radiculopathy [Unknown]
  - Cholangitis [Unknown]
  - Otitis media [Unknown]
  - Hip arthroplasty [Unknown]
  - Soft tissue infection [Unknown]
  - Obesity [Unknown]
  - Prostate cancer [Unknown]
  - Sinus bradycardia [Unknown]
  - Haemophagocytic lymphohistiocytosis [Fatal]
  - Anxiety [Unknown]
  - Ascites [Unknown]
  - Liver function test abnormal [Unknown]
  - Renal impairment [Unknown]
  - Gastroenteritis [Unknown]
  - Duodenal obstruction [Unknown]
  - Electrolyte imbalance [Unknown]
  - Eye injury [Unknown]
  - Facial paresis [Unknown]
  - Haemorrhoids [Unknown]
  - Hepatic infection [Unknown]
  - Hypomagnesaemia [Unknown]
  - Aneurysm [Unknown]
  - Perseveration [Unknown]
  - Vertigo [Unknown]
  - Lung infection [Fatal]
  - Pneumocystis jirovecii pneumonia [Fatal]
  - Embolism [Fatal]
  - Small intestinal obstruction [Unknown]
  - Fracture [Unknown]
  - Tumour lysis syndrome [Unknown]
  - Vomiting [Unknown]
  - Appendicitis [Unknown]
  - Blood alkaline phosphatase increased [Unknown]
  - Arthralgia [Unknown]
  - Bronchial obstruction [Unknown]
  - Cholecystitis [Unknown]
  - Fall [Unknown]
  - Large intestine perforation [Unknown]
  - Disinhibition [Unknown]
  - Dysphagia [Unknown]
  - Escherichia bacteraemia [Unknown]
  - Gastric stenosis [Unknown]
  - Hyperglycaemia [Unknown]
  - Myocardial infarction [Unknown]
  - Lung neoplasm [Unknown]
  - Extravasation [Unknown]
  - Respiratory tract infection [Unknown]
  - Steroid withdrawal syndrome [Unknown]
  - Tooth infection [Unknown]
  - Pancytopenia [Unknown]
  - Metabolic disorder [Unknown]
